FAERS Safety Report 14157290 (Version 2)
Quarter: 2020Q3

REPORT INFORMATION
  Report Type: Report from Study
  Country: US (occurrence: US)
  Receive Date: 20171103
  Receipt Date: 20180906
  Transmission Date: 20201104
  Serious: Yes (Hospitalization)
  Sender: FDA-Public Use
  Company Number: US-JNJFOC-20171035137

PATIENT
  Age: 13 Year
  Sex: Female

DRUGS (15)
  1. LACTOSE [Concomitant]
     Active Substance: LACTOSE
     Indication: NUTRITIONAL SUPPLEMENTATION
     Route: 065
     Dates: start: 20160808
  2. ALBUTEROL SULFATE. [Concomitant]
     Active Substance: ALBUTEROL SULFATE
     Indication: COUGH
     Route: 055
     Dates: start: 20170224, end: 20170301
  3. REMICADE [Suspect]
     Active Substance: INFLIXIMAB
     Indication: CROHN^S DISEASE
     Route: 042
     Dates: start: 20160823
  4. AMOXICILLIN. [Concomitant]
     Active Substance: AMOXICILLIN
     Indication: OTITIS MEDIA
     Route: 065
     Dates: start: 20170216, end: 20170222
  5. BACITRACIN ZINC. [Concomitant]
     Active Substance: BACITRACIN ZINC
     Indication: BURNS SECOND DEGREE
     Route: 065
     Dates: start: 20170527
  6. JOLESSA [Concomitant]
     Active Substance: ETHINYL ESTRADIOL\LEVONORGESTREL
     Indication: ORAL CONTRACEPTION
     Route: 065
     Dates: start: 20170825
  7. BENADRYL [Concomitant]
     Active Substance: DIPHENHYDRAMINE HYDROCHLORIDE
     Indication: PREMEDICATION
     Route: 065
     Dates: start: 20160823
  8. FLUTICASONE. [Concomitant]
     Active Substance: FLUTICASONE
     Indication: OTITIS MEDIA
     Route: 065
     Dates: start: 20170216, end: 20170222
  9. ACETAMINOPHEN. [Concomitant]
     Active Substance: ACETAMINOPHEN
     Indication: PREMEDICATION
     Route: 065
     Dates: start: 20160823
  10. ALBUTEROL. [Concomitant]
     Active Substance: ALBUTEROL
     Indication: COUGH
     Route: 065
     Dates: start: 20170224, end: 20170224
  11. TAMIFLU [Concomitant]
     Active Substance: OSELTAMIVIR PHOSPHATE
     Indication: INFLUENZA
     Route: 065
     Dates: start: 20160104, end: 20160109
  12. OXYCODONE [Concomitant]
     Active Substance: OXYCODONE
     Indication: BURNS SECOND DEGREE
     Route: 065
     Dates: start: 20170527, end: 20170527
  13. VITRON C [Concomitant]
     Active Substance: ASCORBIC ACID\IRON
     Indication: SERUM FERRITIN DECREASED
     Route: 065
     Dates: start: 20151103
  14. AVIANE [Concomitant]
     Active Substance: ETHINYL ESTRADIOL\LEVONORGESTREL
     Indication: ORAL CONTRACEPTION
     Dosage: 0.1?20 MG?MCG
     Route: 048
     Dates: start: 20170726, end: 20170824
  15. REMICADE [Suspect]
     Active Substance: INFLIXIMAB
     Route: 042

REACTIONS (1)
  - Gastroenteritis viral [Recovered/Resolved]

NARRATIVE: CASE EVENT DATE: 20171024
